FAERS Safety Report 10519081 (Version 5)
Quarter: 2015Q3

REPORT INFORMATION
  Report Type: Report from Study
  Country: DE (occurrence: DE)
  Receive Date: 20141015
  Receipt Date: 20150706
  Transmission Date: 20151125
  Serious: Yes (Death, Hospitalization)
  Sender: FDA-Public Use
  Company Number: DE-BAYER-2014-139816

PATIENT
  Age: 70 Year
  Sex: Male
  Weight: 100 kg

DRUGS (11)
  1. BISOPROLOL [Concomitant]
     Active Substance: BISOPROLOL
     Dosage: 2.5 MG TOTAL DAILY DOSE
     Dates: start: 20131219
  2. ASPIRIN. [Concomitant]
     Active Substance: ASPIRIN
     Dosage: 100 MG TOTAL DAILY DOSE
     Dates: start: 20131219
  3. HYDROMORPHONE [Concomitant]
     Active Substance: HYDROMORPHONE
     Dosage: 16 MG TOTAL DAILY DOSE
     Dates: start: 20140915, end: 20141015
  4. LYRICA [Concomitant]
     Active Substance: PREGABALIN
     Indication: PAIN
     Dosage: 100 MG TOTAL DAILY DOSE
     Dates: start: 20140815
  5. ALLOPURINOL. [Concomitant]
     Active Substance: ALLOPURINOL
     Indication: PROPHYLAXIS
     Dosage: 300 MG TOTAL DAILY DOSE
     Dates: start: 20140215
  6. MOVICOL [Concomitant]
     Active Substance: POLYETHYLENE GLYCOL 3350\POTASSIUM CHLORIDE\SODIUM BICARBONATE\SODIUM CHLORIDE
     Dosage: 2 BAGS TOTAL DAILY DOSE
     Dates: start: 20140913
  7. TAZOBAC [MEGALOMICIN,PIPERACILLIN SODIUM,TAZOBACTAM SODIUM] [Concomitant]
     Dosage: 6 MG, QD
     Dates: start: 20140927, end: 20141015
  8. STIVARGA [Suspect]
     Active Substance: REGORAFENIB
     Indication: COLORECTAL CANCER METASTATIC
     Dosage: 40 MG, QID
     Route: 048
     Dates: start: 20140820, end: 20140928
  9. UNACID [Concomitant]
     Active Substance: AMPICILLIN SODIUM\SULBACTAM SODIUM
     Dosage: 9 G TOTAL DAILY DOSE
     Dates: start: 20140918, end: 20140923
  10. PANTOZOL [Concomitant]
     Active Substance: PANTOPRAZOLE SODIUM
     Indication: PROPHYLAXIS
     Dosage: 40 MG TOTAL DAILY DOSE
     Dates: start: 20140215
  11. NOVALGIN [Concomitant]
     Active Substance: METAMIZOLE SODIUM
     Dosage: 120 DROPS TOTAL DAILY DOSE
     Dates: start: 20140815, end: 20141015

REACTIONS (3)
  - General physical health deterioration [Recovered/Resolved]
  - Pneumonia [Recovered/Resolved]
  - Infectious pleural effusion [Fatal]

NARRATIVE: CASE EVENT DATE: 20140913
